FAERS Safety Report 6457361-1 (Version None)
Quarter: 2009Q4

REPORT INFORMATION
  Report Type: 
  Country: None (occurrence: None)
  Receive Date: 20091125
  Receipt Date: 20091119
  Transmission Date: 20100525
  Serious: Yes (Other)
  Sender: FDA-Public Use
  Company Number: US-JNJCH-2009030448

PATIENT
  Sex: Female

DRUGS (1)
  1. TUCKS PRE-MOISTENED PADS [Suspect]
     Indication: ANORECTAL DISORDER
     Dosage: TEXT:ONE PAD ONE TIME
     Route: 054
     Dates: start: 20091119, end: 20091119

REACTIONS (1)
  - WRONG TECHNIQUE IN DRUG USAGE PROCESS [None]
